FAERS Safety Report 26193620 (Version 1)
Quarter: 2025Q4

REPORT INFORMATION
  Report Type: Spontaneous
  Country: US (occurrence: None)
  Receive Date: 20251224
  Receipt Date: 20251224
  Transmission Date: 20260118
  Serious: Yes (Hospitalization)
  Sender: FDA-CTU
  Company Number: None

PATIENT
  Age: 40 Year
  Sex: Male
  Weight: 82.3 kg

DRUGS (5)
  1. CARBOPLATIN [Suspect]
     Active Substance: CARBOPLATIN
     Dates: end: 20210919
  2. ETOPOSIDE [Suspect]
     Active Substance: ETOPOSIDE
     Dates: end: 20210919
  3. FILGRASTIM [Suspect]
     Active Substance: FILGRASTIM
     Dates: end: 20210917
  4. IFOSFAMIDE [Suspect]
     Active Substance: IFOSFAMIDE
     Dates: end: 20210904
  5. TAXOL [Suspect]
     Active Substance: PACLITAXEL
     Dates: end: 20210902

REACTIONS (8)
  - Arteriosclerosis [None]
  - Anaemia [None]
  - Platelet count decreased [None]
  - Neutropenic sepsis [None]
  - Myelosuppression [None]
  - Neutrophil count decreased [None]
  - White blood cell count decreased [None]
  - C-reactive protein increased [None]

NARRATIVE: CASE EVENT DATE: 20210929
